FAERS Safety Report 23261305 (Version 3)
Quarter: 2024Q4

REPORT INFORMATION
  Report Type: Report from Study
  Country: US (occurrence: US)
  Receive Date: 20231205
  Receipt Date: 20241014
  Transmission Date: 20250115
  Serious: No
  Sender: BIOVITRUM
  Company Number: US-BIOVITRUM-2023-US-019557

PATIENT
  Age: 40 Year
  Sex: Female

DRUGS (1)
  1. KINERET [Suspect]
     Active Substance: ANAKINRA
     Indication: Still^s disease
     Dosage: DAILY
     Route: 058
     Dates: start: 20201119

REACTIONS (8)
  - Off label use [Not Recovered/Not Resolved]
  - Skin induration [Unknown]
  - Injection site pain [Unknown]
  - Still^s disease [Unknown]
  - Condition aggravated [Unknown]
  - Tinnitus [Unknown]
  - Product storage error [Unknown]
  - Liquid product physical issue [Unknown]

NARRATIVE: CASE EVENT DATE: 20201119
